FAERS Safety Report 7223065-0 (Version None)
Quarter: 2011Q1

REPORT INFORMATION
  Report Type: 
  Country: None (occurrence: None)
  Receive Date: 20110112
  Receipt Date: 20110107
  Transmission Date: 20110831
  Serious: Yes (Other)
  Sender: FDA-Public Use
  Company Number: GB-AMGEN-GBRSP2011001873

PATIENT

DRUGS (9)
  1. AMITRIPTYLINE [Concomitant]
     Indication: MUSCLE RELAXANT THERAPY
     Dosage: 40 MG, 1X/DAY
     Route: 048
     Dates: start: 20040501
  2. METHOTREXATE [Concomitant]
     Indication: RHEUMATOID ARTHRITIS
     Dosage: 20 MG, UNK
     Route: 048
     Dates: start: 20040601
  3. LEVOTHYROXINE SODIUM [Concomitant]
     Indication: THYROID DISORDER
     Route: 048
  4. HUMIRA [Suspect]
     Indication: RHEUMATOID ARTHRITIS
     Dosage: 40 MG, 1 IN 2 WK
     Route: 058
     Dates: start: 20100223, end: 20101011
  5. TRAMADOL HCL [Concomitant]
     Indication: ANALGESIC THERAPY
     Dosage: UNK
     Route: 048
  6. DICLOFENAC SODIUM [Suspect]
     Indication: RHEUMATOID ARTHRITIS
     Dosage: UNK MG, UNK
     Route: 048
     Dates: start: 20080101
  7. TRAMADOL HCL [Concomitant]
     Route: 048
  8. ETANERCEPT [Suspect]
     Dosage: UNK
     Route: 065
     Dates: start: 20091103
  9. FOLIC ACID [Concomitant]
     Indication: RHEUMATOID ARTHRITIS
     Dosage: 10 MG, WEEKLY
     Route: 048
     Dates: start: 20040601

REACTIONS (1)
  - RECTAL HAEMORRHAGE [None]
